FAERS Safety Report 4716378-5 (Version None)
Quarter: 2005Q3

REPORT INFORMATION
  Report Type: 
  Country: None (occurrence: None)
  Receive Date: 20050714
  Receipt Date: 20050704
  Transmission Date: 20060218
  Serious: Yes (Death)
  Sender: FDA-Public Use
  Company Number: GXKR2005GB01294

PATIENT
  Sex: Male

DRUGS (11)
  1. FUROSEMIDE [Suspect]
     Dosage: 80 MG, ORAL
     Route: 048
  2. PANTOPRAZOLE SODIUM [Suspect]
     Dosage: QD, ORAL
     Route: 048
  3. TIOTROPIUM BROMIDE (TIOTROPIUM BROMIDE) [Suspect]
     Dosage: RESPIRATORY
     Route: 055
  4. COVERSYL /FRA/ (PERINDOPRIL) [Suspect]
     Dosage: 4 MG, ORAL
     Route: 048
  5. ALLOPURINOL [Suspect]
     Dosage: 200 MG, ORAL
     Route: 048
  6. DIGOXIN [Suspect]
     Dosage: 250 UG, ORAL
     Route: 048
  7. WARFARIN SODIUM [Concomitant]
  8. BECLOMETHASONE DIPROPIONATE [Concomitant]
  9. ALBUTEROL SULFATE HFA [Concomitant]
  10. SIMVASTATIN [Concomitant]
  11. ACETAMINOPHEN [Concomitant]

REACTIONS (1)
  - AORTIC DISSECTION [None]
